FAERS Safety Report 13773646 (Version 2)
Quarter: 2017Q4

REPORT INFORMATION
  Report Type: Report from Study
  Country: ZA (occurrence: ZA)
  Receive Date: 20170720
  Receipt Date: 20171117
  Transmission Date: 20180320
  Serious: Yes (Hospitalization, Other)
  Sender: FDA-Public Use
  Company Number: PHHY2017ZA046849

PATIENT
  Age: 34 Year
  Sex: Female

DRUGS (4)
  1. NEXIUM [Concomitant]
     Active Substance: ESOMEPRAZOLE MAGNESIUM
     Indication: EPIGASTRIC DISCOMFORT
     Dosage: 1 DF, PRN (WHEN REQUIRED)
     Route: 065
     Dates: start: 2016
  2. DESFERAL [Suspect]
     Active Substance: DEFEROXAMINE MESYLATE
     Indication: THALASSAEMIA
     Dosage: 5 VIALS 4-5 TIMES A WEEK VIA SYRINGE
     Route: 065
     Dates: start: 1984
  3. PROBIFLORA ADULT EVERYDAY FLORA BALANCE [Concomitant]
     Indication: PRODUCT USED FOR UNKNOWN INDICATION
     Dosage: 1 DF, BID
     Route: 065
  4. FERIPROX [Concomitant]
     Active Substance: DEFERIPRONE
     Indication: PRODUCT USED FOR UNKNOWN INDICATION
     Dosage: 8 DF, QD
     Route: 065

REACTIONS (8)
  - Kidney infection [Recovered/Resolved]
  - Ear infection [Recovered/Resolved]
  - Back pain [Unknown]
  - Helicobacter infection [Recovered/Resolved]
  - Epigastric discomfort [Unknown]
  - Pharyngitis [Recovered/Resolved]
  - Serum ferritin increased [Unknown]
  - Cystitis [Recovered/Resolved]

NARRATIVE: CASE EVENT DATE: 201609
